FAERS Safety Report 15349358 (Version 1)
Quarter: 2018Q3

REPORT INFORMATION
  Report Type: Spontaneous
  Country: US (occurrence: US)
  Receive Date: 20180904
  Receipt Date: 20180904
  Transmission Date: 20181010
  Serious: No
  Sender: FDA-Public Use
  Company Number: US-SA-2018SA243500

PATIENT
  Age: 32 Year
  Sex: Male

DRUGS (10)
  1. TEMAZEPAM. [Concomitant]
     Active Substance: TEMAZEPAM
  2. CLOBETASOL [Concomitant]
     Active Substance: CLOBETASOL
  3. VITAMIN D [Concomitant]
     Active Substance: CHOLECALCIFEROL
  4. IRON [Concomitant]
     Active Substance: IRON
  5. DUPIXENT [Suspect]
     Active Substance: DUPILUMAB
     Dosage: 300 UNK
     Route: 058
  6. ATRIPLA [Concomitant]
     Active Substance: EFAVIRENZ\EMTRICITABINE\TENOFOVIR DISOPROXIL FUMARATE
  7. VALACYCLOVIR [VALACICLOVIR] [Concomitant]
  8. DUPIXENT [Suspect]
     Active Substance: DUPILUMAB
     Indication: DERMATITIS ATOPIC
     Dosage: 300 MG, QOW
     Route: 058
     Dates: start: 20180309
  9. PAROXETINE. [Concomitant]
     Active Substance: PAROXETINE
  10. PAXIL [PIROXICAM] [Concomitant]

REACTIONS (2)
  - Dermatitis atopic [Unknown]
  - Contusion [Unknown]
